FAERS Safety Report 19350336 (Version 5)
Quarter: 2022Q3

REPORT INFORMATION
  Report Type: Report from Study
  Country: JP (occurrence: JP)
  Receive Date: 20210531
  Receipt Date: 20220804
  Transmission Date: 20221027
  Serious: Yes (Hospitalization, Other)
  Sender: FDA-Public Use
  Company Number: JP-ONO-2021JP012676

PATIENT
  Age: 48 Year
  Sex: Male
  Weight: 94.3 kg

DRUGS (27)
  1. ETELCALCETIDE [Suspect]
     Active Substance: ETELCALCETIDE
     Indication: Hyperparathyroidism secondary
     Dosage: 5 MILLIGRAM, Q56H
     Route: 065
     Dates: start: 20180806, end: 20190107
  2. ETELCALCETIDE [Suspect]
     Active Substance: ETELCALCETIDE
     Dosage: 2.5 MILLIGRAM, Q56H
     Route: 065
     Dates: start: 20190109, end: 20200323
  3. ETELCALCETIDE [Suspect]
     Active Substance: ETELCALCETIDE
     Dosage: 5 MILLIGRAM, Q56H
     Route: 065
     Dates: start: 20200325
  4. EPOETIN ALFA [Concomitant]
     Active Substance: ERYTHROPOIETIN
     Dosage: 750 INTERNATIONAL UNIT, QWK
     Route: 065
     Dates: start: 20180803, end: 20181102
  5. DARBEPOETIN ALFA [Concomitant]
     Active Substance: DARBEPOETIN ALFA
     Dosage: 20 MUG, QW
     Route: 065
     Dates: start: 20200228, end: 20200403
  6. DARBEPOETIN ALFA [Concomitant]
     Active Substance: DARBEPOETIN ALFA
     Dosage: 30 MUG, QW
     Dates: start: 20200410, end: 20200821
  7. DARBEPOETIN ALFA [Concomitant]
     Active Substance: DARBEPOETIN ALFA
     Dosage: 10 MUG, QW
     Dates: start: 20200828, end: 20200904
  8. DARBEPOETIN ALFA [Concomitant]
     Active Substance: DARBEPOETIN ALFA
     Dosage: 5 MUG, QW
     Dates: start: 20200911, end: 20200918
  9. DARBEPOETIN ALFA [Concomitant]
     Active Substance: DARBEPOETIN ALFA
     Dosage: 10 MUG, EVERY MONTH
     Dates: start: 20201002, end: 20201120
  10. DARBEPOETIN ALFA [Concomitant]
     Active Substance: DARBEPOETIN ALFA
     Dosage: 5 MICROGRAM, QWK
     Route: 065
     Dates: start: 20181228, end: 20190222
  11. DARBEPOETIN ALFA [Concomitant]
     Active Substance: DARBEPOETIN ALFA
     Dosage: 10 MICROGRAM, QWK
     Route: 065
     Dates: start: 20190301, end: 20190322
  12. DARBEPOETIN ALFA [Concomitant]
     Active Substance: DARBEPOETIN ALFA
     Dosage: 30 MICROGRAM, QWK
     Route: 065
     Dates: start: 20190329, end: 20190522
  13. DARBEPOETIN ALFA [Concomitant]
     Active Substance: DARBEPOETIN ALFA
     Dosage: 10 MICROGRAM, QWK
     Route: 065
     Dates: start: 20190524, end: 20190607
  14. DARBEPOETIN ALFA [Concomitant]
     Active Substance: DARBEPOETIN ALFA
     Dosage: 5 MICROGRAM, QWK
     Route: 065
     Dates: start: 20190524, end: 20190703
  15. DARBEPOETIN ALFA [Concomitant]
     Active Substance: DARBEPOETIN ALFA
     Dosage: 20 MICROGRAM, QWK
     Route: 065
     Dates: start: 20200228, end: 20200403
  16. DARBEPOETIN ALFA [Concomitant]
     Active Substance: DARBEPOETIN ALFA
     Dosage: 30 MICROGRAM, QWK
     Route: 065
     Dates: start: 20200410, end: 20200821
  17. DARBEPOETIN ALFA [Concomitant]
     Active Substance: DARBEPOETIN ALFA
     Dosage: 10 MICROGRAM, QWK
     Route: 065
     Dates: start: 20200828, end: 20200904
  18. DARBEPOETIN ALFA [Concomitant]
     Active Substance: DARBEPOETIN ALFA
     Dosage: 5 MICROGRAM, QWK
     Route: 065
     Dates: start: 20200911, end: 20200918
  19. DARBEPOETIN ALFA [Concomitant]
     Active Substance: DARBEPOETIN ALFA
     Dosage: 10 MUG, EVERY MONTH
     Route: 065
     Dates: start: 20201002, end: 20201120
  20. ROCALTROL [Concomitant]
     Active Substance: CALCITRIOL
     Dosage: 0.5 MICROGRAM, Q84H
     Route: 042
     Dates: end: 20181022
  21. ROCALTROL [Concomitant]
     Active Substance: CALCITRIOL
     Dosage: 1 MUG, Q84H
     Route: 042
     Dates: start: 20181024, end: 20190805
  22. ROCALTROL [Concomitant]
     Active Substance: CALCITRIOL
     Dosage: 0.5 MICROGRAM, Q84H
     Route: 042
     Dates: start: 20190807, end: 20200311
  23. ROCALTROL [Concomitant]
     Active Substance: CALCITRIOL
     Dosage: 0.5 MUG, Q84H
     Route: 042
     Dates: end: 20181022
  24. ROCALTROL [Concomitant]
     Active Substance: CALCITRIOL
     Dosage: 0.5 MUG, Q84H
     Dates: start: 20190807, end: 20200311
  25. MAXACALCITOL [Concomitant]
     Active Substance: MAXACALCITOL
     Dosage: 5 MUG, Q84H
     Route: 065
     Dates: start: 20200313
  26. CALCIUM CARBONATE [Concomitant]
     Active Substance: CALCIUM CARBONATE
     Dosage: 3000 MG, EVERYDAY
     Route: 048
  27. FERRIC CITRATE ANHYDROUS [Concomitant]
     Active Substance: FERRIC CITRATE ANHYDROUS
     Dosage: 1500 MG, EVERYDAY
     Route: 048

REACTIONS (4)
  - Angina unstable [Recovering/Resolving]
  - Angina unstable [Recovering/Resolving]
  - Shunt infection [Recovered/Resolved]
  - Pneumonia [Recovering/Resolving]

NARRATIVE: CASE EVENT DATE: 20200623
